FAERS Safety Report 4488923-9 (Version None)
Quarter: 2004Q4

REPORT INFORMATION
  Report Type: 
  Country: None (occurrence: None)
  Receive Date: 20041029
  Receipt Date: 20041019
  Transmission Date: 20050328
  Serious: Yes (Other)
  Sender: FDA-Public Use
  Company Number: FR-ABBOTT-04P-056-0278247-00

PATIENT
  Age: 84 Year
  Sex: Female

DRUGS (2)
  1. VERAPAMIL HYDROCHLORIDE [Suspect]
     Indication: DRUG USE FOR UNKNOWN INDICATION
  2. DONEPEZIL HCL [Interacting]
     Indication: DRUG USE FOR UNKNOWN INDICATION
     Route: 048

REACTIONS (2)
  - ATRIOVENTRICULAR BLOCK [None]
  - DRUG INTERACTION [None]
